FAERS Safety Report 10190649 (Version 3)
Quarter: 2014Q3

REPORT INFORMATION
  Report Type: Spontaneous
  Country: FR (occurrence: FR)
  Receive Date: 20140523
  Receipt Date: 20140708
  Transmission Date: 20150326
  Serious: Yes (Other)
  Sender: FDA-Public Use
  Company Number: FR-ROCHE-1405954

PATIENT
  Age: 48 Year
  Sex: Male
  Weight: 71 kg

DRUGS (9)
  1. FLIXOTIDE [Concomitant]
     Active Substance: FLUTICASONE PROPIONATE
  2. SINGULAIR [Concomitant]
     Active Substance: MONTELUKAST SODIUM
  3. XOLAIR [Suspect]
     Active Substance: OMALIZUMAB
     Indication: ASTHMA
     Route: 058
     Dates: start: 201103
  4. RIMIFON [Suspect]
     Active Substance: ISONIAZID
     Indication: PRODUCT USED FOR UNKNOWN INDICATION
     Route: 065
     Dates: start: 201103, end: 201110
  5. RIFADINE [Suspect]
     Active Substance: RIFAMPIN
     Indication: PRODUCT USED FOR UNKNOWN INDICATION
     Route: 065
     Dates: start: 201103, end: 201110
  6. AZANTAC [Concomitant]
     Active Substance: RANITIDINE HYDROCHLORIDE
  7. VENTOLINE [Concomitant]
     Active Substance: ALBUTEROL
  8. FENOTEROL HYDROBROMIDE/IPRATROPIUM BROMIDE [Concomitant]
  9. FORADIL [Concomitant]
     Active Substance: FORMOTEROL FUMARATE

REACTIONS (1)
  - Cutaneous lupus erythematosus [Not Recovered/Not Resolved]

NARRATIVE: CASE EVENT DATE: 201109
